FAERS Safety Report 5933779-8 (Version None)
Quarter: 2008Q4

REPORT INFORMATION
  Report Type: 
  Country: None (occurrence: None)
  Receive Date: 20081024
  Receipt Date: 20081014
  Transmission Date: 20090506
  Serious: Yes (Other)
  Sender: FDA-Public Use
  Company Number: GXKR2008DE09835

PATIENT
  Age: 53 Year
  Sex: Male

DRUGS (6)
  1. LOPERAMIDE [Suspect]
     Dosage: 120 DF/MONTH,
  2. ZOPICLONE (NGX) (ZOPICLONE) TABLET [Suspect]
     Dosage: 160 DF/MONTH
  3. DOXYLAMINE (DOXYLAMINE) TABLET [Suspect]
     Dosage: 160 DF/MONTH,
  4. ACETYLSALICYLIC ACID SRT [Concomitant]
  5. LEVETIRACETAM [Concomitant]
  6. CITALOPRAM HYDROBROMIDE [Concomitant]

REACTIONS (1)
  - DRUG ABUSE [None]
